FAERS Safety Report 8477588-7 (Version None)
Quarter: 2012Q2

REPORT INFORMATION
  Report Type: 
  Country: None (occurrence: None)
  Receive Date: 20120626
  Receipt Date: 20120626
  Transmission Date: 20120825
  Serious: Yes (Other)
  Sender: FDA-Public Use
  Company Number: None

PATIENT
  Age: 35 Year
  Sex: Female
  Weight: 57.6068 kg

DRUGS (1)
  1. CIPROFLOXACIN [Suspect]
     Dosage: 500 MG TWICE PER DAY PO
     Route: 048
     Dates: start: 20120527, end: 20120603

REACTIONS (8)
  - DYSPEPSIA [None]
  - CHANGE OF BOWEL HABIT [None]
  - FEELING ABNORMAL [None]
  - DIARRHOEA [None]
  - WEIGHT DECREASED [None]
  - INSOMNIA [None]
  - BODY TEMPERATURE FLUCTUATION [None]
  - SENSATION OF PRESSURE [None]
